FAERS Safety Report 6341638-4 (Version None)
Quarter: 2009Q3

REPORT INFORMATION
  Report Type: 
  Country: None (occurrence: None)
  Receive Date: 20090904
  Receipt Date: 20090825
  Transmission Date: 20100115
  Serious: Yes (Hospitalization)
  Sender: FDA-Public Use
  Company Number: BR-AMGEN-US362231

PATIENT
  Sex: Female

DRUGS (8)
  1. ENBREL [Suspect]
     Indication: DRUG USE FOR UNKNOWN INDICATION
     Dosage: UNKNOWN
     Route: 058
  2. PREDNISONE [Concomitant]
  3. FLUOXETINE [Concomitant]
  4. HYDROCHLOROTHIAZIDE [Concomitant]
  5. FUROSEMIDE/POTASSIUM CHLORIDE [Concomitant]
  6. AMLODIPINE BESYLATE [Concomitant]
  7. ASPIRIN [Concomitant]
  8. ENALAPRIL MALEATE [Concomitant]

REACTIONS (5)
  - BLOOD PRESSURE INCREASED [None]
  - CONFUSIONAL STATE [None]
  - DYSLALIA [None]
  - SOMNOLENCE [None]
  - VERTIGO [None]
